FAERS Safety Report 6493255-3 (Version None)
Quarter: 2009Q4

REPORT INFORMATION
  Report Type: 
  Country: None (occurrence: None)
  Receive Date: 20091214
  Receipt Date: 20091202
  Transmission Date: 20100525
  Serious: Yes (Other)
  Sender: FDA-Public Use
  Company Number: US-AMGEN-QUU377974

PATIENT

DRUGS (3)
  1. ENBREL [Suspect]
     Indication: RHEUMATOID ARTHRITIS
     Route: 064
     Dates: start: 20061015
  2. PLAQUENIL [Concomitant]
     Route: 064
  3. METHOTREXATE [Concomitant]
     Route: 064

REACTIONS (1)
  - PREMATURE BABY [None]
